FAERS Safety Report 5485689-0 (Version None)
Quarter: 2007Q4

REPORT INFORMATION
  Report Type: 
  Country: None (occurrence: None)
  Receive Date: 20071015
  Receipt Date: 20071010
  Transmission Date: 20080405
  Serious: Yes (Hospitalization)
  Sender: FDA-Public Use
  Company Number: US-BRISTOL-MYERS SQUIBB COMPANY-13894621

PATIENT
  Age: 62 Year
  Sex: Female
  Weight: 95 kg

DRUGS (4)
  1. CETUXIMAB [Suspect]
     Indication: ANAL CANCER
     Dates: start: 20070820, end: 20070831
  2. CISPLATIN [Suspect]
     Indication: ANAL CANCER
     Dates: start: 20070820, end: 20070820
  3. FLUOROURACIL [Suspect]
     Indication: ANAL CANCER
     Dates: start: 20070820, end: 20070824
  4. RADIATION THERAPY [Suspect]
     Indication: ANAL CANCER
     Dosage: TOTAL DOSE TO DATE 43.2 GY
     Dates: start: 20070824, end: 20070824

REACTIONS (9)
  - DEEP VEIN THROMBOSIS [None]
  - DIARRHOEA [None]
  - FATIGUE [None]
  - HAEMOGLOBIN DECREASED [None]
  - HYPOPHOSPHATAEMIA [None]
  - PLATELET COUNT DECREASED [None]
  - PROCTALGIA [None]
  - RADIATION SKIN INJURY [None]
  - WHITE BLOOD CELL COUNT DECREASED [None]
